FAERS Safety Report 18509328 (Version 1)
Quarter: 2020Q4

REPORT INFORMATION
  Report Type: Spontaneous
  Country: DE (occurrence: DE)
  Receive Date: 20201117
  Receipt Date: 20201117
  Transmission Date: 20210114
  Serious: Yes (Death)
  Sender: FDA-Public Use
  Company Number: DE-ROCHE-2714069

PATIENT
  Age: 83 Year
  Sex: Male
  Weight: 52 kg

DRUGS (6)
  1. GRANISETRON [Concomitant]
     Active Substance: GRANISETRON
     Indication: COLON CANCER
     Route: 042
  2. DEXAMETHASONE. [Concomitant]
     Active Substance: DEXAMETHASONE
     Indication: COLON CANCER
     Route: 042
  3. FLUOROURACIL. [Concomitant]
     Active Substance: FLUOROURACIL
     Indication: COLON CANCER
     Route: 042
  4. IRINOTECAN [Concomitant]
     Active Substance: IRINOTECAN
     Indication: COLON CANCER
     Route: 042
  5. BEVACIZUMAB. [Suspect]
     Active Substance: BEVACIZUMAB
     Indication: COLON CANCER
     Route: 042
  6. FOLINSAEURE [Concomitant]
     Active Substance: LEUCOVORIN
     Indication: COLON CANCER
     Route: 042

REACTIONS (3)
  - Duodenal perforation [Fatal]
  - Gastrointestinal necrosis [Fatal]
  - Ileal perforation [Fatal]

NARRATIVE: CASE EVENT DATE: 20201012
